FAERS Safety Report 7589779-8 (Version None)
Quarter: 2011Q3

REPORT INFORMATION
  Report Type: 
  Country: None (occurrence: None)
  Receive Date: 20110705
  Receipt Date: 20110630
  Transmission Date: 20111222
  Serious: Yes (Other)
  Sender: FDA-Public Use
  Company Number: A0934031A

PATIENT
  Age: 65 Year
  Sex: Female

DRUGS (3)
  1. MULTIPLE MEDICATIONS [Concomitant]
  2. VITAMIN TAB [Concomitant]
  3. ALLI [Suspect]
     Route: 048

REACTIONS (1)
  - LIVER FUNCTION TEST ABNORMAL [None]
